FAERS Safety Report 9057939 (Version 1)
Quarter: 2013Q1

REPORT INFORMATION
  Report Type: Spontaneous
  Country: US (occurrence: None)
  Receive Date: 20130204
  Receipt Date: 20130204
  Transmission Date: 20140127
  Serious: Yes (Life-Threatening)
  Sender: FDA-Public Use
  Company Number: None

PATIENT
  Age: 84 Year
  Sex: Female
  Weight: 68.04 kg

DRUGS (1)
  1. CIPROFLOXACIN [Suspect]

REACTIONS (12)
  - Amnesia [None]
  - Drug ineffective [None]
  - Deafness [None]
  - Alopecia [None]
  - Balance disorder [None]
  - Fungal infection [None]
  - Oedema [None]
  - Muscle spasms [None]
  - Pain [None]
  - Abasia [None]
  - Drug hypersensitivity [None]
  - Convulsion [None]
